FAERS Safety Report 18780304 (Version 1)
Quarter: 2021Q1

REPORT INFORMATION
  Report Type: Spontaneous
  Country: US (occurrence: US)
  Receive Date: 20210125
  Receipt Date: 20210125
  Transmission Date: 20210419
  Serious: Yes (Hospitalization, Other)
  Sender: FDA-Public Use
  Company Number: US-MICRO LABS LIMITED-ML2021-00120

PATIENT
  Age: 32 Year
  Sex: Male

DRUGS (1)
  1. BUPROPION. [Suspect]
     Active Substance: BUPROPION
     Dosage: 180 TABLETS OF 150 MG EXTENDED?RELEASE
     Route: 048

REACTIONS (8)
  - Toxicity to various agents [Unknown]
  - Coma [Recovering/Resolving]
  - Pulseless electrical activity [Recovering/Resolving]
  - Generalised tonic-clonic seizure [Not Recovered/Not Resolved]
  - Overdose [Unknown]
  - Hypotension [Unknown]
  - Areflexia [Recovering/Resolving]
  - Pupil fixed [Recovering/Resolving]
